FAERS Safety Report 7682026-8 (Version None)
Quarter: 2011Q3

REPORT INFORMATION
  Report Type: 
  Country: None (occurrence: None)
  Receive Date: 20110815
  Receipt Date: 20110802
  Transmission Date: 20111222
  Serious: Yes (Other)
  Sender: FDA-Public Use
  Company Number: US-ELI_LILLY_AND_COMPANY-US201103003965

PATIENT
  Sex: Female

DRUGS (3)
  1. FORTEO [Suspect]
     Dosage: 20 UG, QD
     Dates: end: 20110701
  2. FORTEO [Suspect]
     Indication: OSTEOPOROSIS
     Dosage: 20 UG, QD
     Dates: start: 20110301
  3. FORTEO [Suspect]
     Dosage: 20 UG, QD

REACTIONS (7)
  - CONTUSION [None]
  - MUSCLE SPASMS [None]
  - WEIGHT DECREASED [None]
  - SPINAL DEFORMITY [None]
  - HYPOACUSIS [None]
  - FALL [None]
  - DIZZINESS [None]
